FAERS Safety Report 9734402 (Version 2)
Quarter: 2013Q4

REPORT INFORMATION
  Report Type: Report from Study
  Country: DE (occurrence: DE)
  Receive Date: 20131206
  Receipt Date: 20131206
  Transmission Date: 20140711
  Serious: Yes (Death, Hospitalization)
  Sender: FDA-Public Use
  Company Number: DE-BEH-2013038669

PATIENT
  Age: 79 Year
  Sex: Female
  Weight: 48 kg

DRUGS (5)
  1. PRIVIGEN [Suspect]
     Indication: IMMUNE THROMBOCYTOPENIC PURPURA
     Dates: start: 20130712, end: 20130712
  2. PRIVIGEN [Suspect]
     Dates: start: 20130712, end: 20130712
  3. PRIVIGEN [Suspect]
     Dosage: 2 X 10 G
     Dates: start: 20130722, end: 20130722
  4. DEXAMETHASON [Concomitant]
     Dosage: 2 X 40 MG
  5. PIPERACILLIN/TAZOBACTAM [Concomitant]

REACTIONS (1)
  - Respiratory failure [Fatal]
